FAERS Safety Report 16105883 (Version 2)
Quarter: 2019Q3

REPORT INFORMATION
  Report Type: Spontaneous
  Country: JP (occurrence: JP)
  Receive Date: 20190322
  Receipt Date: 20190705
  Transmission Date: 20191004
  Serious: Yes (Hospitalization)
  Sender: FDA-Public Use
  Company Number: JP-OTSUKA-2019_007457

PATIENT
  Age: 2 Year
  Sex: Male
  Weight: 14.1 kg

DRUGS (1)
  1. SAMSCA 30 MG [Suspect]
     Active Substance: TOLVAPTAN
     Indication: ACCIDENTAL EXPOSURE TO PRODUCT
     Dosage: 30 MG, SINGLE
     Route: 048
     Dates: start: 20190308, end: 20190308

REACTIONS (2)
  - Accidental exposure to product by child [Unknown]
  - Nephrogenic diabetes insipidus [Recovered/Resolved]

NARRATIVE: CASE EVENT DATE: 20190308
